FAERS Safety Report 6392802-X (Version None)
Quarter: 2009Q4

REPORT INFORMATION
  Report Type: 
  Country: None (occurrence: None)
  Receive Date: 20091007
  Receipt Date: 20090821
  Transmission Date: 20100525
  Serious: No
  Sender: FDA-Public Use
  Company Number: US-ALLERGAN-0911658US

PATIENT
  Age: 60 Year
  Sex: Female

DRUGS (2)
  1. LATISSE [Suspect]
     Indication: HYPOTRICHOSIS
     Dosage: UNK
     Route: 061
     Dates: start: 20090101
  2. LATISSE [Suspect]
     Dosage: UNK
     Route: 061
     Dates: start: 20090601, end: 20090101

REACTIONS (3)
  - APPLICATION SITE ERYTHEMA [None]
  - HAIR GROWTH ABNORMAL [None]
  - HAIR TEXTURE ABNORMAL [None]
